FAERS Safety Report 8226527-2 (Version None)
Quarter: 2012Q1

REPORT INFORMATION
  Report Type: 
  Country: None (occurrence: None)
  Receive Date: 20120322
  Receipt Date: 20120312
  Transmission Date: 20120608
  Serious: Yes (Hospitalization, Other)
  Sender: FDA-Public Use
  Company Number: US-BIOGENIDEC-2011BI039170

PATIENT
  Age: 70 Year
  Sex: Female
  Weight: 56 kg

DRUGS (10)
  1. AVONEX [Suspect]
     Indication: MULTIPLE SCLEROSIS
     Route: 030
     Dates: start: 20060420, end: 20100512
  2. EMEND [Concomitant]
  3. LORAZEPAM [Concomitant]
  4. COMPAZINE [Concomitant]
  5. ZOFRAN [Concomitant]
  6. LIDOCAINE VISCOUS 2% MUCOSAL SOLUTION [Concomitant]
  7. REYNOLD'S SOLUTION NOS [Concomitant]
  8. AVONEX [Suspect]
     Route: 030
     Dates: start: 20111108
  9. HYDROCORTISONE 1% OINTMENT [Concomitant]
  10. NORCO [Concomitant]

REACTIONS (2)
  - BREAST CANCER [None]
  - FEBRILE NEUTROPENIA [None]
